FAERS Safety Report 8372333-8 (Version None)
Quarter: 2012Q2

REPORT INFORMATION
  Report Type: 
  Country: None (occurrence: None)
  Receive Date: 20120521
  Receipt Date: 20120517
  Transmission Date: 20120825
  Serious: Yes (Other)
  Sender: FDA-Public Use
  Company Number: US-PFIZER INC-2012120779

PATIENT
  Sex: Female
  Weight: 70.295 kg

DRUGS (3)
  1. DILANTIN KAPSEAL [Suspect]
     Indication: CONVULSION
     Dosage: TWO CAPSULES IN THE MORNING AND ONE CAPSULE IN THE EVENING
     Route: 048
     Dates: start: 20090101
  2. ALBUTEROL SULFATE [Concomitant]
     Indication: WHEEZING
     Dosage: TWO PUFFS AS NEEDED
  3. METOPROLOL TARTRATE [Concomitant]
     Indication: BLOOD PRESSURE ABNORMAL
     Dosage: 25 MG, 2X/DAY

REACTIONS (1)
  - CONVULSION [None]
